FAERS Safety Report 4983193-7 (Version None)
Quarter: 2006Q2

REPORT INFORMATION
  Report Type: 
  Country: None (occurrence: None)
  Receive Date: 20060426
  Receipt Date: 20060413
  Transmission Date: 20061013
  Serious: Yes (Other)
  Sender: FDA-Public Use
  Company Number: GB-GLAXOSMITHKLINE-B0420492A

PATIENT
  Age: 67 Year
  Sex: Male
  Weight: 74 kg

DRUGS (5)
  1. BUPROPION [Suspect]
     Indication: SMOKING CESSATION THERAPY
     Dosage: 150MG PER DAY
     Route: 048
     Dates: start: 20050801, end: 20060101
  2. ASPIRIN [Concomitant]
     Indication: CEREBROVASCULAR ACCIDENT
     Dosage: 25MG PER DAY
     Route: 048
     Dates: start: 20020101
  3. PRAVASTATIN [Concomitant]
     Indication: CEREBROVASCULAR ACCIDENT
     Dosage: 40MG PER DAY
     Route: 048
     Dates: start: 20020101
  4. SERETIDE [Concomitant]
     Indication: ASTHMA
     Dates: start: 19960101
  5. SALBUTAMOL [Concomitant]
     Indication: ASTHMA
     Dates: start: 19960101

REACTIONS (2)
  - NEPHROLITHIASIS [None]
  - RENAL COLIC [None]
